FAERS Safety Report 5826674-6 (Version None)
Quarter: 2008Q3

REPORT INFORMATION
  Report Type: 
  Country: None (occurrence: None)
  Receive Date: 20080730
  Receipt Date: 20080401
  Transmission Date: 20090109
  Serious: No
  Sender: FDA-Public Use
  Company Number: US-BAYER-200714240BCC

PATIENT
  Age: 57 Year
  Sex: Male
  Weight: 95 kg

DRUGS (1)
  1. ALEVE COLD AND SINUS [Suspect]
     Indication: SINUS DISORDER
     Route: 048
     Dates: start: 20071201

REACTIONS (1)
  - NASAL DRYNESS [None]
